FAERS Safety Report 10682648 (Version 2)
Quarter: 2014Q4

REPORT INFORMATION
  Report Type: Spontaneous
  Country: CA (occurrence: CA)
  Receive Date: 20141230
  Receipt Date: 20141230
  Transmission Date: 20150529
  Serious: Yes (Death, Disabling)
  Sender: FDA-Public Use
  Company Number: CA-PFIZER INC-2013374099

PATIENT
  Age: 61 Year
  Sex: Male

DRUGS (1)
  1. SUTENT [Suspect]
     Active Substance: SUNITINIB MALATE
     Indication: METASTATIC RENAL CELL CARCINOMA
     Dosage: 50 MG, 1X/DAY, CYCLIC
     Route: 048
     Dates: start: 20131210, end: 20140103

REACTIONS (5)
  - Death [Fatal]
  - Stomatitis [Recovered/Resolved]
  - Mucosal inflammation [Recovered/Resolved]
  - Oral pain [Recovered/Resolved]
  - Decreased appetite [Recovered/Resolved]

NARRATIVE: CASE EVENT DATE: 20131230
